FAERS Safety Report 25105175 (Version 1)
Quarter: 2025Q1

REPORT INFORMATION
  Report Type: Spontaneous
  Country: US (occurrence: None)
  Receive Date: 20250320
  Receipt Date: 20250320
  Transmission Date: 20250408
  Serious: Yes (Life-Threatening, Hospitalization)
  Sender: FDA-CTU
  Company Number: None

PATIENT
  Age: 76 Year
  Sex: Male

DRUGS (1)
  1. IOTHALAMATE MEGLUMINE [Suspect]
     Active Substance: IOTHALAMATE MEGLUMINE
     Indication: Angiogram
     Dates: start: 20250204, end: 20250204

REACTIONS (5)
  - Anaphylactic reaction [None]
  - Angioedema [None]
  - Cough [None]
  - Pyrexia [None]
  - Vomiting [None]

NARRATIVE: CASE EVENT DATE: 20250205
